FAERS Safety Report 25430372 (Version 1)
Quarter: 2025Q2

REPORT INFORMATION
  Report Type: Spontaneous
  Country: US (occurrence: None)
  Receive Date: 20250612
  Receipt Date: 20250612
  Transmission Date: 20250716
  Serious: Yes (Disabling)
  Sender: FDA-CTU
  Company Number: None

PATIENT
  Age: 89 Year
  Sex: Female
  Weight: 52.65 kg

DRUGS (6)
  1. CILOSTAZOL [Suspect]
     Active Substance: CILOSTAZOL
     Indication: Cardiac disorder
     Dosage: 180 TABLET(S) TWICE A DAY ORAL
     Route: 048
     Dates: start: 20250420, end: 20250609
  2. CLOTRIMAZOLE [Suspect]
     Active Substance: CLOTRIMAZOLE
  3. MULTAQ [Concomitant]
     Active Substance: DRONEDARONE
  4. OXYBUTYNIN [Concomitant]
     Active Substance: OXYBUTYNIN
  5. ATORVASTATIN [Concomitant]
     Active Substance: ATORVASTATIN
  6. AMLODIPINE [Concomitant]
     Active Substance: AMLODIPINE BESYLATE

REACTIONS (9)
  - Dry skin [None]
  - Skin exfoliation [None]
  - Skin burning sensation [None]
  - Paraesthesia [None]
  - Pain of skin [None]
  - Joint swelling [None]
  - Peripheral swelling [None]
  - Visual impairment [None]
  - Pruritus [None]

NARRATIVE: CASE EVENT DATE: 20250525
